FAERS Safety Report 24548625 (Version 1)
Quarter: 2024Q4

REPORT INFORMATION
  Report Type: Spontaneous
  Country: US (occurrence: None)
  Receive Date: 20241023
  Receipt Date: 20241023
  Transmission Date: 20250115
  Serious: Yes (Hospitalization)
  Sender: Public
  Company Number: None

PATIENT
  Age: 40 Year
  Sex: Male
  Weight: 84 kg

DRUGS (1)
  1. IMIPRAMINE HYDROCHLORIDE [Suspect]
     Active Substance: IMIPRAMINE HYDROCHLORIDE
     Indication: Depression
     Dosage: FREQUENCY : AT BEDTIME;?
     Route: 048

REACTIONS (6)
  - Suicidal ideation [None]
  - Feeling abnormal [None]
  - Hallucination, auditory [None]
  - Hallucination, visual [None]
  - Psychotic disorder [None]
  - Poor quality sleep [None]

NARRATIVE: CASE EVENT DATE: 20240501
